FAERS Safety Report 11907087 (Version 2)
Quarter: 2016Q1

REPORT INFORMATION
  Report Type: Report from Study
  Country: MX (occurrence: MX)
  Receive Date: 20160111
  Receipt Date: 20160119
  Transmission Date: 20160526
  Serious: Yes (Death, Other)
  Sender: FDA-Public Use
  Company Number: MX-UCBSA-2016000773

PATIENT
  Age: 81 Year
  Sex: Male
  Weight: 56 kg

DRUGS (9)
  1. ACETYLSALICYLIC ACID [Concomitant]
     Active Substance: ASPIRIN
     Indication: CARDIOVASCULAR DISORDER
     Dosage: 100 MG, ONCE DAILY (QD) (100 MG /24 HRS)
     Dates: start: 2003
  2. LEVETIRACETAM. [Suspect]
     Active Substance: LEVETIRACETAM
     Dosage: 2 G PER DAY (1 GRAM/12 HOURS)
     Dates: start: 20151226
  3. CLONAZEPAM. [Concomitant]
     Active Substance: CLONAZEPAM
     Indication: INSOMNIA
     Dosage: 0.5 MG, ONCE DAILY (QD); ? OF TABLET/24 HRS (STRENGTH 2 MG)
     Dates: start: 201502
  4. LEVETIRACETAM. [Suspect]
     Active Substance: LEVETIRACETAM
     Indication: SEIZURE
     Dosage: 2500 MG PER DAY (STRENGTH: 500 MG)
     Route: 048
     Dates: start: 20130823, end: 201505
  5. ATORVASTATIN [Concomitant]
     Active Substance: ATORVASTATIN
     Indication: BLOOD CHOLESTEROL
     Dosage: 20 MG, ONCE DAILY (QD) (20 MG/24 HRS)
     Dates: start: 2013
  6. OMEPRAZOLE. [Concomitant]
     Active Substance: OMEPRAZOLE
     Indication: GASTRITIS
     Dosage: 20 MG, ONCE DAILY (QD) (20MG/24 HRS)
     Dates: start: 2013
  7. LEVETIRACETAM. [Suspect]
     Active Substance: LEVETIRACETAM
     Dosage: UNK,DOSE WAS DECREASING
     Route: 048
     Dates: start: 2015, end: 20151230
  8. CLOPIDOGREL [Concomitant]
     Active Substance: CLOPIDOGREL BISULFATE
     Indication: PAIN
     Dosage: 75 MG, ONCE DAILY (QD) (75 MG/24 HRS)
     Dates: start: 201502
  9. LEVETIRACETAM. [Suspect]
     Active Substance: LEVETIRACETAM
     Indication: SEIZURE
     Dosage: 1 GRAM PER 24 HRS (STRENGTH: 500 MG)
     Dates: start: 201505, end: 2015

REACTIONS (1)
  - Cerebrovascular accident [Fatal]

NARRATIVE: CASE EVENT DATE: 20151230
